FAERS Safety Report 9314203 (Version 1)
Quarter: 2013Q2

REPORT INFORMATION
  Report Type: Spontaneous
  Country: CA (occurrence: CA)
  Receive Date: 20130529
  Receipt Date: 20130529
  Transmission Date: 20140414
  Serious: Yes (Other)
  Sender: FDA-Public Use
  Company Number: CA-PFIZER INC-2013163052

PATIENT
  Sex: Male

DRUGS (1)
  1. MOTRIN IB [Suspect]
     Dosage: 200 MILLIGRAM, PRN
     Route: 048
     Dates: start: 200302, end: 20030530

REACTIONS (3)
  - Erythema [Recovered/Resolved]
  - Skin disorder [Recovered/Resolved]
  - Dyspnoea [Recovered/Resolved]
